FAERS Safety Report 25528891 (Version 1)
Quarter: 2025Q3

REPORT INFORMATION
  Report Type: Spontaneous
  Country: US (occurrence: None)
  Receive Date: 20250707
  Receipt Date: 20250707
  Transmission Date: 20251021
  Serious: Yes (Hospitalization)
  Sender: FDA-CTU
  Company Number: None

PATIENT
  Age: 59 Year
  Sex: Female
  Weight: 69.2 kg

DRUGS (3)
  1. JARDIANCE [Suspect]
     Active Substance: EMPAGLIFLOZIN
     Indication: Diabetes mellitus
     Dosage: FREQUENCY : DAILY;?
     Route: 048
     Dates: start: 20250610, end: 20250702
  2. ARIPIPRAZOLE [Concomitant]
     Active Substance: ARIPIPRAZOLE
  3. METFORMIN [Concomitant]
     Active Substance: METFORMIN HYDROCHLORIDE

REACTIONS (22)
  - Pneumonia [None]
  - Sinus congestion [None]
  - Nausea [None]
  - Abdominal discomfort [None]
  - Decreased appetite [None]
  - Blood potassium decreased [None]
  - Metabolic acidosis [None]
  - Chronic obstructive pulmonary disease [None]
  - Rheumatoid arthritis [None]
  - Renal tubular necrosis [None]
  - Acute kidney injury [None]
  - Haemofiltration [None]
  - Faecal occult blood positive [None]
  - Anaemia [None]
  - Anaemia [None]
  - Toxicologic test abnormal [None]
  - Drug screen positive [None]
  - Opiates [None]
  - Blood cannabinoids [None]
  - Urine analysis abnormal [None]
  - Electrolyte imbalance [None]
  - Hypertension [None]

NARRATIVE: CASE EVENT DATE: 20250702
